FAERS Safety Report 26157862 (Version 1)
Quarter: 2025Q4

REPORT INFORMATION
  Report Type: Spontaneous
  Country: US (occurrence: None)
  Receive Date: 20251213
  Receipt Date: 20251213
  Transmission Date: 20260118
  Serious: No
  Sender: FDA-CTU
  Company Number: None

PATIENT
  Age: 55 Year
  Sex: Female
  Weight: 88.65 kg

DRUGS (1)
  1. JOURNAVX [Suspect]
     Active Substance: SUZETRIGINE
     Indication: Pain
     Dosage: 1 TABLET DAILY ORAL
     Route: 048
     Dates: start: 20251211, end: 20251212

REACTIONS (4)
  - Headache [None]
  - Muscle spasms [None]
  - Blood pressure increased [None]
  - Pruritus [None]

NARRATIVE: CASE EVENT DATE: 20251212
